FAERS Safety Report 8399271-9 (Version None)
Quarter: 2012Q2

REPORT INFORMATION
  Report Type: 
  Country: None (occurrence: None)
  Receive Date: 20120531
  Receipt Date: 20120521
  Transmission Date: 20120825
  Serious: Yes (Other)
  Sender: FDA-Public Use
  Company Number: JP-GLAXOSMITHKLINE-B0803897A

PATIENT
  Age: 30 Year
  Sex: Female

DRUGS (4)
  1. PALIPERIDONE [Concomitant]
     Dosage: 6MG PER DAY
     Route: 048
  2. PAXIL [Suspect]
     Indication: SCHIZOPHRENIA
     Dosage: 10MG PER DAY
     Route: 048
  3. RISPERIDONE [Concomitant]
     Indication: PERSECUTORY DELUSION
     Dosage: 2MG PER DAY
     Route: 048
  4. PALIPERIDONE [Concomitant]
     Indication: SCHIZOPHRENIA
     Dosage: 3MG PER DAY
     Route: 048
     Dates: start: 20110101

REACTIONS (4)
  - SOMNOLENCE [None]
  - SOCIAL AVOIDANT BEHAVIOUR [None]
  - MALAISE [None]
  - AGGRESSION [None]
